FAERS Safety Report 18957946 (Version 1)
Quarter: 2021Q1

REPORT INFORMATION
  Report Type: Spontaneous
  Country: US (occurrence: US)
  Receive Date: 20210302
  Receipt Date: 20210302
  Transmission Date: 20210420
  Serious: Yes (Other)
  Sender: FDA-Public Use
  Company Number: US-MYLANLABS-2021M1011893

PATIENT
  Sex: Female
  Weight: 88.9 kg

DRUGS (4)
  1. ESTROGEN [Concomitant]
     Active Substance: ESTROGENS
  2. LEVOTHYROXINE. [Suspect]
     Active Substance: LEVOTHYROXINE
     Indication: HYPOTHYROIDISM
     Dosage: UNK
     Route: 065
  3. ESTRADIOL. [Concomitant]
     Active Substance: ESTRADIOL
  4. PROGESTERONE. [Concomitant]
     Active Substance: PROGESTERONE

REACTIONS (4)
  - Alopecia [Unknown]
  - Weight increased [Unknown]
  - Illness [Unknown]
  - Drug ineffective [Unknown]
